FAERS Safety Report 10681031 (Version 5)
Quarter: 2017Q4

REPORT INFORMATION
  Report Type: Report from Study
  Country: US (occurrence: US)
  Receive Date: 20141229
  Receipt Date: 20171020
  Transmission Date: 20180320
  Serious: Yes (Other)
  Sender: FDA-Public Use
  Company Number: US-SA-2014SA177844

PATIENT
  Age: 69 Year
  Sex: Female
  Weight: 60 kg

DRUGS (2)
  1. GABAPENTIN. [Suspect]
     Active Substance: GABAPENTIN
     Route: 065
  2. FABRAZYME [Suspect]
     Active Substance: AGALSIDASE BETA
     Indication: FABRY^S DISEASE
     Route: 041
     Dates: start: 20060320

REACTIONS (19)
  - Fabry^s disease [Unknown]
  - Influenza like illness [Not Recovered/Not Resolved]
  - Pain [Unknown]
  - Upper respiratory tract congestion [Unknown]
  - Sleep disorder [Unknown]
  - Transient ischaemic attack [Unknown]
  - Lacrimation increased [Not Recovered/Not Resolved]
  - Influenza like illness [Unknown]
  - Hypoaesthesia [Unknown]
  - Condition aggravated [Unknown]
  - Nausea [Unknown]
  - Eye infection [Not Recovered/Not Resolved]
  - Muscle spasms [Unknown]
  - Malaise [Unknown]
  - Feeling abnormal [Unknown]
  - Confusional state [Unknown]
  - Cough [Not Recovered/Not Resolved]
  - Fatigue [Unknown]
  - Hypersensitivity [Unknown]

NARRATIVE: CASE EVENT DATE: 2015
